FAERS Safety Report 4754598-4 (Version None)
Quarter: 2005Q3

REPORT INFORMATION
  Report Type: 
  Country: None (occurrence: None)
  Receive Date: 20050829
  Receipt Date: 20050315
  Transmission Date: 20060218
  Serious: Yes (Hospitalization)
  Sender: FDA-Public Use
  Company Number: US-MERCK-0503USA02473

PATIENT
  Age: 48 Year
  Sex: Female

DRUGS (4)
  1. VIOXX [Suspect]
     Indication: BREAST SWELLING
     Route: 048
     Dates: start: 20031001, end: 20041001
  2. VICODIN [Concomitant]
     Route: 065
  3. RESTORIL [Concomitant]
     Route: 065
  4. XANAX [Concomitant]
     Route: 065

REACTIONS (15)
  - BACK PAIN [None]
  - DYSFUNCTIONAL UTERINE BLEEDING [None]
  - FIBROMYALGIA [None]
  - HAEMORRHAGE [None]
  - HYPERTENSION [None]
  - INSOMNIA [None]
  - MIGRAINE [None]
  - NERVOUSNESS [None]
  - PANIC ATTACK [None]
  - RENAL CYST [None]
  - SINUS BRADYCARDIA [None]
  - UTERINE HAEMORRHAGE [None]
  - UTERINE LEIOMYOMA [None]
  - WEIGHT INCREASED [None]
  - WHITE BLOOD CELL COUNT INCREASED [None]
